FAERS Safety Report 22331941 (Version 1)
Quarter: 2023Q2

REPORT INFORMATION
  Report Type: Spontaneous
  Country: CN (occurrence: CN)
  Receive Date: 20230517
  Receipt Date: 20230517
  Transmission Date: 20230722
  Serious: Yes (Hospitalization, Other)
  Sender: FDA-Public Use
  Company Number: CN-PFIZER INC-PV202300085855

PATIENT
  Age: 67 Year
  Sex: Male
  Weight: 64 kg

DRUGS (1)
  1. CYTARABINE [Suspect]
     Active Substance: CYTARABINE
     Indication: Neoplasm
     Dosage: 3 G, 2X/DAY
     Dates: start: 20230425, end: 20230428

REACTIONS (2)
  - Myelosuppression [Recovering/Resolving]
  - Eyelid oedema [Unknown]

NARRATIVE: CASE EVENT DATE: 20230506
